FAERS Safety Report 10186237 (Version 2)
Quarter: 2014Q2

REPORT INFORMATION
  Report Type: Spontaneous
  Country: NO (occurrence: NO)
  Receive Date: 20140521
  Receipt Date: 20140604
  Transmission Date: 20141212
  Serious: Yes (Hospitalization)
  Sender: FDA-Public Use
  Company Number: NO-GLAXOSMITHKLINE-B0994209A

PATIENT
  Age: 67 Year
  Sex: Male

DRUGS (1)
  1. TAFINLAR [Suspect]
     Indication: MALIGNANT MELANOMA
     Route: 065

REACTIONS (8)
  - Neutropenia [Recovered/Resolved]
  - Pyrexia [Unknown]
  - Pain [Unknown]
  - Therapeutic response decreased [Unknown]
  - Constipation [Unknown]
  - Thrombocytopenia [Not Recovered/Not Resolved]
  - C-reactive protein increased [Unknown]
  - Infection [Unknown]
